FAERS Safety Report 8540901-6 (Version None)
Quarter: 2012Q3

REPORT INFORMATION
  Report Type: 
  Country: None (occurrence: None)
  Receive Date: 20120726
  Receipt Date: 20120723
  Transmission Date: 20120928
  Serious: Yes (Death, Other)
  Sender: FDA-Public Use
  Company Number: US-PFIZER INC-2012143699

PATIENT
  Sex: Female

DRUGS (3)
  1. SUTENT [Suspect]
     Dosage: 37.5 MG, 1X/DAY
     Route: 048
     Dates: start: 20120420
  2. SUTENT [Suspect]
     Dosage: 37.5 MG, UNK
     Dates: start: 20120503
  3. SUTENT [Suspect]
     Indication: NEUROENDOCRINE CARCINOMA
     Dosage: 37.5 MG, 1X/DAY
     Route: 048
     Dates: start: 20120401

REACTIONS (6)
  - DISEASE PROGRESSION [None]
  - VAGINAL HAEMORRHAGE [None]
  - PAIN [None]
  - ALANINE AMINOTRANSFERASE INCREASED [None]
  - NEUROENDOCRINE CARCINOMA [None]
  - FISTULA [None]
